FAERS Safety Report 8162490 (Version 2)
Quarter: 2015Q1

REPORT INFORMATION
  Report Type: Spontaneous
  Country: US (occurrence: US)
  Receive Date: 20110929
  Receipt Date: 20150113
  Transmission Date: 20150721
  Serious: Yes (Hospitalization)
  Sender: FDA-Public Use
  Company Number: US-ASTRAZENECA-2010SE35979

PATIENT
  Age: 72 Year
  Sex: Female
  Weight: 72.6 kg

DRUGS (13)
  1. POTASSIUM [Concomitant]
     Active Substance: POTASSIUM
     Indication: BLOOD POTASSIUM
     Dosage: DAILY
  2. AZO [Concomitant]
     Active Substance: PHENAZOPYRIDINE HYDROCHLORIDE
     Indication: BLADDER DISORDER
  3. BRYL [Concomitant]
     Indication: DIABETES MELLITUS
  4. UNSPECIFIED GENERICS [Suspect]
     Active Substance: UNSPECIFIED INGREDIENT
     Route: 065
  5. CLAIN [Concomitant]
     Indication: CARDIAC DISORDER
  6. LIPITOR [Concomitant]
     Active Substance: ATORVASTATIN CALCIUM
     Indication: CARDIAC DISORDER
  7. PRILOSEC [Suspect]
     Active Substance: OMEPRAZOLE MAGNESIUM
     Route: 048
  8. PRILOSEC OTC [Suspect]
     Active Substance: OMEPRAZOLE MAGNESIUM
     Route: 048
  9. BENADRYL [Concomitant]
     Active Substance: DIPHENHYDRAMINE HYDROCHLORIDE
     Indication: MULTIPLE ALLERGIES
  10. AMRYAL [Concomitant]
     Indication: BLOOD PRESSURE ABNORMAL
  11. NEXIUM [Suspect]
     Active Substance: ESOMEPRAZOLE MAGNESIUM
     Indication: GASTROOESOPHAGEAL REFLUX DISEASE
     Route: 048
  12. DIOVAN [Concomitant]
     Active Substance: VALSARTAN
     Indication: CARDIAC DISORDER
  13. MAGOX [Concomitant]
     Indication: BLOOD MAGNESIUM

REACTIONS (9)
  - Body height decreased [Not Recovered/Not Resolved]
  - Rash [Unknown]
  - Bladder obstruction [Unknown]
  - Intestinal polyp [Not Recovered/Not Resolved]
  - Diarrhoea [Not Recovered/Not Resolved]
  - Osteoarthritis [Unknown]
  - Cholelithiasis [Unknown]
  - Hypertonic bladder [Unknown]
  - Gallbladder disorder [Unknown]
